FAERS Safety Report 4631664-5 (Version None)
Quarter: 2005Q2

REPORT INFORMATION
  Report Type: 
  Country: None (occurrence: None)
  Receive Date: 20050407
  Receipt Date: 20050322
  Transmission Date: 20051028
  Serious: Yes (Hospitalization)
  Sender: FDA-Public Use
  Company Number: L04-TUR-08102-01

PATIENT
  Age: 53 Year
  Sex: Male

DRUGS (2)
  1. CIPRALEX (ESCITALOPRAM) [Suspect]
     Indication: MAJOR DEPRESSION
     Dosage: 10 MG BID PO
     Route: 048
     Dates: start: 20031103, end: 20041208
  2. CIPRALEX (ESCITALOPRAM) [Suspect]
     Indication: MAJOR DEPRESSION
     Dosage: 10 MG QD PO
     Route: 048

REACTIONS (5)
  - DEEP VEIN THROMBOSIS [None]
  - IRRITABILITY [None]
  - MAJOR DEPRESSION [None]
  - PERSECUTORY DELUSION [None]
  - SUICIDE ATTEMPT [None]
